FAERS Safety Report 5908461-3 (Version None)
Quarter: 2008Q3

REPORT INFORMATION
  Report Type: 
  Country: None (occurrence: None)
  Receive Date: 20080930
  Receipt Date: 20080918
  Transmission Date: 20090109
  Serious: Yes (Hospitalization, Other)
  Sender: FDA-Public Use
  Company Number: 2008-03466

PATIENT
  Age: 66 Year
  Sex: Female
  Weight: 102.7 kg

DRUGS (2)
  1. VELCADE [Suspect]
     Indication: GLIOBLASTOMA MULTIFORME
     Dosage: 1.3 MG/M2, IV BOLUS
     Route: 040
     Dates: start: 20080829, end: 20080911
  2. VORINOSTA(SUBEROYLANILIDE HYDROXAMIC ACID) ORAL DRUG UNSPECIFIED FORM [Suspect]
     Indication: GLIOBLASTOMA MULTIFORME
     Dosage: 400 MG, ORAL
     Route: 048
     Dates: start: 20080829, end: 20080911

REACTIONS (11)
  - APHASIA [None]
  - ATAXIA [None]
  - CEREBRAL HAEMORRHAGE [None]
  - DYSPHASIA [None]
  - FACIAL PARESIS [None]
  - FALL [None]
  - GLIOBLASTOMA MULTIFORME [None]
  - MEMORY IMPAIRMENT [None]
  - MUSCULAR WEAKNESS [None]
  - NEOPLASM RECURRENCE [None]
  - PERIPHERAL MOTOR NEUROPATHY [None]
